FAERS Safety Report 4636297-2 (Version None)
Quarter: 2005Q2

REPORT INFORMATION
  Report Type: 
  Country: None (occurrence: None)
  Receive Date: 20050415
  Receipt Date: 20040701
  Transmission Date: 20051028
  Serious: No
  Sender: FDA-Public Use
  Company Number: US-BRISTOL-MYERS SQUIBB COMPANY-12637286

PATIENT
  Age: 62 Year
  Sex: Female

DRUGS (7)
  1. CARBOPLATIN [Suspect]
     Indication: OVARIAN CANCER
     Dosage: INFUSED OVER 1 HOUR STOP DATE: 16-JUN-2004
     Route: 042
     Dates: start: 20040602, end: 20040602
  2. DECADRON [Concomitant]
     Indication: PREMEDICATION
     Dosage: 4 MG TABLETS X5 2 HOURS PRIOR TO CARBOPLATIN INFUSION
  3. BENADRYL [Concomitant]
     Indication: PREMEDICATION
     Dosage: 25 MG TABLETS X2 2 HOURS PRIOR TO CARBOPLATIN INFUSION
  4. ZOFRAN [Concomitant]
  5. TAGAMET [Concomitant]
  6. PEPCID [Concomitant]
     Indication: PREMEDICATION
     Dosage: 10 MG X2 2 HOURS PRIOR TO CARBOPLATIN INFUSION
  7. ANZEMET [Concomitant]
     Indication: PREMEDICATION
     Dosage: 2 HOURS PRIOR TO CARBOPLATIN INFUSION

REACTIONS (5)
  - BLOOD PRESSURE INCREASED [None]
  - CHEST PAIN [None]
  - COUGH [None]
  - FLUSHING [None]
  - VEIN DISCOLOURATION [None]
